FAERS Safety Report 9460707 (Version 1)
Quarter: 2013Q3

REPORT INFORMATION
  Report Type: Spontaneous
  Country: IT (occurrence: None)
  Receive Date: 20130813
  Receipt Date: 20130813
  Transmission Date: 20140515
  Serious: Yes (Hospitalization, Other)
  Sender: FDA-Public Use
  Company Number: GER/UTL/13/0033909

PATIENT
  Age: 12 Year
  Sex: Female

DRUGS (1)
  1. RISPERIDONE (RISPERIDONE) [Suspect]
     Route: 048
     Dates: start: 20130705, end: 20130715

REACTIONS (2)
  - Loss of consciousness [None]
  - Drug abuse [None]
